FAERS Safety Report 8586861-3 (Version None)
Quarter: 2012Q3

REPORT INFORMATION
  Report Type: 
  Country: None (occurrence: None)
  Receive Date: 20120810
  Receipt Date: 20120716
  Transmission Date: 20120928
  Serious: Yes (Other)
  Sender: FDA-Public Use
  Company Number: CHPA2012US017368

PATIENT
  Age: 80 Year
  Sex: Female

DRUGS (3)
  1. INSULIN [Concomitant]
     Indication: DIABETES MELLITUS
     Dosage: UNK, 3X A DAY AND ONCE AT NIGHT
  2. MYOFLEX ANALGESIC CREME [Suspect]
     Indication: RHEUMATOID ARTHRITIS
     Dosage: VERY SPARINGLY, PRN, FOR 8 YEARS
     Route: 061
  3. NAPROXEN (ALEVE) [Concomitant]
     Indication: PAIN
     Dosage: UNK, PRN

REACTIONS (3)
  - CONDITION AGGRAVATED [None]
  - PANCREATIC NEOPLASM [None]
  - RHEUMATOID ARTHRITIS [None]
